FAERS Safety Report 11047122 (Version 3)
Quarter: 2016Q4

REPORT INFORMATION
  Report Type: Spontaneous
  Country: US (occurrence: US)
  Receive Date: 20150420
  Receipt Date: 20161106
  Transmission Date: 20170206
  Serious: No
  Sender: FDA-Public Use
  Company Number: US-ASTRAZENECA-2007BM12076

PATIENT
  Age: 22769 Day
  Sex: Male
  Weight: 89.8 kg

DRUGS (5)
  1. ALLOPURINOL. [Concomitant]
     Active Substance: ALLOPURINOL
  2. BYETTA [Suspect]
     Active Substance: EXENATIDE
     Indication: TYPE 2 DIABETES MELLITUS
     Route: 058
     Dates: start: 20070724
  3. BYDUREON [Suspect]
     Active Substance: EXENATIDE
     Indication: TYPE 2 DIABETES MELLITUS
     Dosage: SINGLE DOSE TRAY
     Route: 058
  4. BYDUREON [Suspect]
     Active Substance: EXENATIDE
     Indication: TYPE 2 DIABETES MELLITUS
     Dosage: 2 MG 4 COUNT, ONCE A WEEK
     Route: 058
  5. BENADRYL [Concomitant]
     Active Substance: DIPHENHYDRAMINE HYDROCHLORIDE

REACTIONS (9)
  - Urticaria [Unknown]
  - Blood pressure increased [Unknown]
  - Weight decreased [Unknown]
  - Injection site bruising [Unknown]
  - Blood glucose increased [Not Recovered/Not Resolved]
  - Pruritus [Unknown]
  - Rash [Unknown]
  - Injection site coldness [Unknown]
  - Injection site nodule [Recovered/Resolved]

NARRATIVE: CASE EVENT DATE: 20070724
